FAERS Safety Report 16365724 (Version 1)
Quarter: 2019Q2

REPORT INFORMATION
  Report Type: Spontaneous
  Country: US (occurrence: US)
  Receive Date: 20190422
  Receipt Date: 20190422
  Transmission Date: 20190711
  Serious: No
  Sender: FDA-Public Use
  Company Number: None

PATIENT
  Age: 64 Year
  Sex: Female

DRUGS (10)
  1. VICODIN [Concomitant]
     Active Substance: ACETAMINOPHEN\HYDROCODONE BITARTRATE
  2. HUMIRA [Suspect]
     Active Substance: ADALIMUMAB
     Indication: RHEUMATOID ARTHRITIS
     Route: 058
     Dates: start: 20170831
  3. DIFLUCAN [Concomitant]
     Active Substance: FLUCONAZOLE
  4. FOLIC ACID. [Concomitant]
     Active Substance: FOLIC ACID
  5. HUMIRA [Suspect]
     Active Substance: ADALIMUMAB
     Indication: RHEUMATOID ARTHRITIS
  6. PROLIA [Concomitant]
     Active Substance: DENOSUMAB
  7. VENTOLIN [Concomitant]
     Active Substance: ALBUTEROL SULFATE
  8. MYRBETRIQ [Concomitant]
     Active Substance: MIRABEGRON
  9. VITAMIN D [Concomitant]
     Active Substance: VITAMIN D NOS
  10. AZITHROMYCIN ANHYDROUS. [Concomitant]
     Active Substance: AZITHROMYCIN ANHYDROUS

REACTIONS (2)
  - Squamous cell carcinoma [None]
  - Vaginal dysplasia [None]
